FAERS Safety Report 7852316-4 (Version None)
Quarter: 2011Q4

REPORT INFORMATION
  Report Type: 
  Country: None (occurrence: None)
  Receive Date: 20111026
  Receipt Date: 20111014
  Transmission Date: 20120403
  Serious: Yes (Life-Threatening, Hospitalization, Other)
  Sender: FDA-Public Use
  Company Number: US-ELI_LILLY_AND_COMPANY-US201104005446

PATIENT
  Sex: Female

DRUGS (29)
  1. FISH OIL [Concomitant]
  2. ASCORBIC ACID [Concomitant]
  3. BETA CAROTENE [Concomitant]
  4. VICODIN [Concomitant]
  5. FORTEO [Suspect]
     Dosage: 20 UG, QD
     Route: 065
     Dates: start: 20110315, end: 20110419
  6. LOVAZA [Concomitant]
     Dosage: 1 G, UNK
  7. CRESTOR [Concomitant]
     Dosage: 10 MG, EACH EVENING
  8. VITAMIN TAB [Concomitant]
  9. VITAMIN D [Concomitant]
  10. OSTEO BI-FLEX [Concomitant]
  11. ANESTHETICS [Concomitant]
  12. FORTEO [Suspect]
     Dosage: 20 UG, QD
     Route: 065
     Dates: start: 20110501, end: 20110911
  13. FORTEO [Suspect]
     Dosage: 20 UG, QD
     Route: 065
     Dates: start: 20111001
  14. PENTOXIFYLLINE [Concomitant]
     Dosage: 400 MG, PRN
  15. CALCIUM CARBONATE [Concomitant]
  16. TRAMADOL HCL [Concomitant]
  17. FORTEO [Suspect]
     Indication: OSTEOPOROSIS
     Dosage: 20 UG, QD
     Route: 065
     Dates: start: 20091101, end: 20110228
  18. LOVAZA [Concomitant]
  19. ASPIRIN [Concomitant]
  20. VITAMIN A [Concomitant]
  21. OMEPRAZOLE [Concomitant]
     Dosage: 40 MG, EACH MORNING
  22. LISINOPRIL [Concomitant]
     Dosage: 10 MG, EACH EVENING
  23. METAMUCIL-2 [Concomitant]
     Dosage: UNK, EACH EVENING
  24. MAGNESIUM [Concomitant]
  25. PLAVIX [Concomitant]
     Dosage: 75 MG, EACH MORNING
  26. LOVAZA [Concomitant]
     Dosage: 1 MG, EACH EVENING
  27. VITAMIN E [Concomitant]
  28. VITAMIN B-12 [Concomitant]
  29. PENICILLIN [Concomitant]

REACTIONS (20)
  - WEIGHT DECREASED [None]
  - CHILLS [None]
  - INJECTION SITE ERYTHEMA [None]
  - APNOEA [None]
  - PERIPHERAL VASCULAR DISORDER [None]
  - STENT REMOVAL [None]
  - INJECTION SITE PRURITUS [None]
  - PRODUCTIVE COUGH [None]
  - INJECTION SITE HAEMORRHAGE [None]
  - DYSPNOEA [None]
  - ASTHENIA [None]
  - INJECTION SITE HAEMATOMA [None]
  - HYPERSENSITIVITY [None]
  - POST PROCEDURAL COMPLICATION [None]
  - VISION BLURRED [None]
  - COLD SWEAT [None]
  - VASCULAR OCCLUSION [None]
  - PERIPHERAL ARTERIAL OCCLUSIVE DISEASE [None]
  - THROAT TIGHTNESS [None]
  - CONTUSION [None]
